FAERS Safety Report 4565417-3 (Version None)
Quarter: 2005Q1

REPORT INFORMATION
  Report Type: 
  Country: None (occurrence: None)
  Receive Date: 20050131
  Receipt Date: 20041206
  Transmission Date: 20050727
  Serious: Yes (Life-Threatening, Disabling)
  Sender: FDA-Public Use
  Company Number: US-MERCK-0412USA00684

PATIENT
  Age: 63 Year
  Sex: Female
  Weight: 127 kg

DRUGS (4)
  1. VIOXX [Suspect]
     Indication: ARTHRITIS
     Route: 048
     Dates: start: 19990101, end: 20040901
  2. NORCO [Concomitant]
     Route: 065
  3. ZESTRIL [Concomitant]
     Route: 065
  4. INDAPAMIDE [Concomitant]
     Route: 065

REACTIONS (3)
  - ATHEROSCLEROSIS [None]
  - CHRONIC OBSTRUCTIVE PULMONARY DISEASE [None]
  - HYPERTENSIVE HEART DISEASE [None]
